FAERS Safety Report 5080649-6 (Version None)
Quarter: 2006Q3

REPORT INFORMATION
  Report Type: 
  Country: None (occurrence: None)
  Receive Date: 20060815
  Receipt Date: 20050928
  Transmission Date: 20061208
  Serious: Yes (Death, Life-Threatening, Hospitalization)
  Sender: FDA-Public Use
  Company Number: GB-ABBOTT-05P-167-0312390-00

PATIENT
  Sex: Male

DRUGS (11)
  1. RITONAVIR SOFT GELATIN CAPSULES [Suspect]
     Indication: HIV INFECTION
     Route: 048
     Dates: start: 20030911
  2. RITONAVIR SOFT GELATIN CAPSULES [Suspect]
  3. RITONAVIR SOFT GELATIN CAPSULES [Suspect]
  4. RITONAVIR SOFT GELATIN CAPSULES [Suspect]
  5. TENOFOVIR [Concomitant]
     Indication: DRUG USE FOR UNKNOWN INDICATION
     Route: 048
     Dates: start: 20031111
  6. DIDANOSINE [Concomitant]
     Indication: DRUG USE FOR UNKNOWN INDICATION
     Route: 048
     Dates: start: 20031111
  7. NEVIRAPINE [Concomitant]
     Indication: DRUG USE FOR UNKNOWN INDICATION
     Route: 048
     Dates: start: 20031111
  8. PRAVASTATIN [Concomitant]
     Indication: DRUG USE FOR UNKNOWN INDICATION
     Route: 048
     Dates: start: 20040322
  9. TIPRANAVIR [Concomitant]
     Indication: HIV INFECTION
     Route: 048
     Dates: start: 20010112, end: 20010217
  10. TIPRANAVIR [Concomitant]
     Route: 048
     Dates: start: 20010217
  11. TIPRANAVIR [Concomitant]
     Route: 048
     Dates: start: 20050830, end: 20050925

REACTIONS (2)
  - CEREBRAL HAEMORRHAGE [None]
  - INTRACRANIAL ANEURYSM [None]
